FAERS Safety Report 4375262-X (Version None)
Quarter: 2004Q2

REPORT INFORMATION
  Report Type: 
  Country: None (occurrence: None)
  Receive Date: 20040608
  Receipt Date: 20040427
  Transmission Date: 20050107
  Serious: Yes (Life-Threatening, Hospitalization, Other)
  Sender: FDA-Public Use
  Company Number: 2004S1001227

PATIENT
  Age: 75 Year
  Sex: Male
  Weight: 56.6996 kg

DRUGS (7)
  1. EXTENDED PHENYTOIN SODIUM [Suspect]
     Indication: CONVULSION
     Dosage: 400MG QD, THEN 500MG QD, ORAL
     Route: 048
     Dates: start: 20031219, end: 20040319
  2. ROFECOXIB [Concomitant]
  3. SERTRALINE HCL [Concomitant]
  4. VITAMIN E [Concomitant]
  5. SAW PALMETTO [Concomitant]
  6. ACETAMINOPHEN [Concomitant]
  7. ESOMEPRAZOLE [Concomitant]

REACTIONS (8)
  - BONE MARROW TOXICITY [None]
  - CONSTIPATION [None]
  - FALL [None]
  - FEELING ABNORMAL [None]
  - LUNG NEOPLASM MALIGNANT [None]
  - PYREXIA [None]
  - REFUSAL OF TREATMENT BY PATIENT [None]
  - WHITE BLOOD CELL COUNT DECREASED [None]
